FAERS Safety Report 10100587 (Version 6)
Quarter: 2016Q3

REPORT INFORMATION
  Report Type: Spontaneous
  Country: US (occurrence: US)
  Receive Date: 20140423
  Receipt Date: 20160721
  Transmission Date: 20161108
  Serious: Yes (Other)
  Sender: FDA-Public Use
  Company Number: US-009507513-1103USA03951

PATIENT
  Sex: Male
  Weight: 66.21 kg

DRUGS (1)
  1. PROPECIA [Suspect]
     Active Substance: FINASTERIDE
     Indication: ANDROGENETIC ALOPECIA
     Dosage: 1 MG, QD
     Route: 048
     Dates: start: 20080213, end: 200806

REACTIONS (19)
  - Scrotal swelling [Unknown]
  - Libido decreased [Not Recovered/Not Resolved]
  - Hydrocele [Unknown]
  - Depression [Unknown]
  - Dysuria [Recovered/Resolved]
  - Libido increased [Unknown]
  - Orgasmic sensation decreased [Unknown]
  - Dehydration [Unknown]
  - Sexual dysfunction [Unknown]
  - Testicular disorder [Unknown]
  - Emotional distress [Not Recovered/Not Resolved]
  - Scrotal pain [Unknown]
  - Varicocele [Unknown]
  - Epididymal cyst [Unknown]
  - Anxiety [Not Recovered/Not Resolved]
  - Food poisoning [Unknown]
  - Erectile dysfunction [Not Recovered/Not Resolved]
  - Testicular pain [Unknown]
  - Semen volume decreased [Unknown]

NARRATIVE: CASE EVENT DATE: 2008
